FAERS Safety Report 7479519-5 (Version None)
Quarter: 2011Q2

REPORT INFORMATION
  Report Type: 
  Country: None (occurrence: None)
  Receive Date: 20110513
  Receipt Date: 20110422
  Transmission Date: 20111010
  Serious: No
  Sender: FDA-Public Use
  Company Number: US-B.I. PHARMACEUTICALS,INC./RIDGEFIELD-2011-BP-07245BP

PATIENT
  Age: 85 Year
  Sex: Female

DRUGS (7)
  1. FUROSEMIDE [Concomitant]
     Dosage: 20 MG
  2. METOPROLOL SUCCINATE [Concomitant]
     Dosage: 50 MG
  3. PRADAXA [Suspect]
     Indication: THROMBOSIS
     Dates: start: 20110201
  4. LANOXIN [Concomitant]
  5. POTASSIUM CHLORIDE [Concomitant]
  6. CYCLOBENLATR [Concomitant]
  7. GLIMEPIRIDE [Concomitant]

REACTIONS (2)
  - DIZZINESS [None]
  - BACK PAIN [None]
